FAERS Safety Report 12976019 (Version 1)
Quarter: 2016Q4

REPORT INFORMATION
  Report Type: Spontaneous
  Country: GB (occurrence: GB)
  Receive Date: 20161126
  Receipt Date: 20161126
  Transmission Date: 20170207
  Serious: Yes (Hospitalization, Other)
  Sender: FDA-Public Use
  Company Number: GB-ASTRAZENECA-2016SF23583

PATIENT
  Age: 70 Year
  Sex: Male

DRUGS (3)
  1. OMEPRAZOLE. [Suspect]
     Active Substance: OMEPRAZOLE
     Route: 048
  2. NAPROXEN. [Interacting]
     Active Substance: NAPROXEN
     Route: 065
  3. METHOTREXATE. [Interacting]
     Active Substance: METHOTREXATE
     Indication: ARTHRITIS
     Route: 048
     Dates: start: 19860101

REACTIONS (3)
  - Immunosuppression [Recovering/Resolving]
  - Pyelonephritis [Unknown]
  - Drug interaction [Unknown]

NARRATIVE: CASE EVENT DATE: 20161001
